FAERS Safety Report 5343912-7 (Version None)
Quarter: 2007Q2

REPORT INFORMATION
  Report Type: 
  Country: None (occurrence: None)
  Receive Date: 20070604
  Receipt Date: 20070528
  Transmission Date: 20071010
  Serious: Yes (Death, Hospitalization)
  Sender: FDA-Public Use
  Company Number: DE-BRISTOL-MYERS SQUIBB COMPANY-13800438

PATIENT
  Age: 70 Year
  Sex: Male

DRUGS (1)
  1. MITOMYCIN-C BULK POWDER [Suspect]
     Indication: COLON CANCER
     Route: 042
     Dates: start: 20070408, end: 20070414

REACTIONS (2)
  - DEATH [None]
  - DERMATITIS BULLOUS [None]
